FAERS Safety Report 19996971 (Version 3)
Quarter: 2021Q4

REPORT INFORMATION
  Report Type: Spontaneous
  Country: US (occurrence: US)
  Receive Date: 20211025
  Receipt Date: 20211118
  Transmission Date: 20220303
  Serious: Yes (Hospitalization, Other)
  Sender: FDA-Public Use
  Company Number: US-009507513-2110USA005844

PATIENT
  Sex: Female
  Weight: 86.621 kg

DRUGS (12)
  1. STEGLATRO [Suspect]
     Active Substance: ERTUGLIFLOZIN PIDOLATE
     Indication: Type 2 diabetes mellitus
     Dosage: 15 MILLIGRAM, QD
     Route: 048
     Dates: start: 20210331, end: 20211004
  2. JARDIANCE [Suspect]
     Active Substance: EMPAGLIFLOZIN
  3. LANTUS [Concomitant]
     Active Substance: INSULIN GLARGINE
  4. AMARYL [Concomitant]
     Active Substance: GLIMEPIRIDE
  5. JANUVIA [Concomitant]
     Active Substance: SITAGLIPTIN PHOSPHATE
  6. CRESTOR [Concomitant]
     Active Substance: ROSUVASTATIN CALCIUM
  7. BUSPIRONE [Concomitant]
     Active Substance: BUSPIRONE HYDROCHLORIDE
  8. ESZOPICLONE [Concomitant]
     Active Substance: ESZOPICLONE
  9. GABAPENTIN [Concomitant]
     Active Substance: GABAPENTIN
  10. OXCARBAZEPINE [Concomitant]
     Active Substance: OXCARBAZEPINE
  11. SUCRALFATE [Concomitant]
     Active Substance: SUCRALFATE
  12. TIZANIDINE [Concomitant]
     Active Substance: TIZANIDINE

REACTIONS (3)
  - Diabetic ketoacidosis [Recovered/Resolved]
  - Hypokalaemia [Unknown]
  - Dehydration [Unknown]

NARRATIVE: CASE EVENT DATE: 20210101
